FAERS Safety Report 22191748 (Version 1)
Quarter: 2023Q2

REPORT INFORMATION
  Report Type: Spontaneous
  Country: ES (occurrence: ES)
  Receive Date: 20230410
  Receipt Date: 20230410
  Transmission Date: 20230721
  Serious: Yes (Life-Threatening, Hospitalization, Other)
  Sender: FDA-Public Use
  Company Number: ES-OTSUKA-2015_002028

PATIENT
  Age: 37 Year
  Sex: Female
  Weight: 88 kg

DRUGS (9)
  1. ABILIFY [Suspect]
     Active Substance: ARIPIPRAZOLE
     Indication: Schizophreniform disorder
     Dosage: 30 MG, QD
     Route: 048
     Dates: start: 2009, end: 20140915
  2. TOPIRAMATE [Suspect]
     Active Substance: TOPIRAMATE
     Indication: Schizophreniform disorder
     Dosage: 300 MG, QD
     Route: 048
     Dates: start: 2011, end: 20140915
  3. CLOZAPINE [Suspect]
     Active Substance: CLOZAPINE
     Indication: Schizophreniform disorder
     Dosage: 200 MG, QD
     Route: 048
     Dates: start: 20140508, end: 20140912
  4. CLOZAPINE [Suspect]
     Active Substance: CLOZAPINE
     Indication: Schizophreniform disorder
  5. DIAZEPAM [Concomitant]
     Active Substance: DIAZEPAM
     Indication: Product used for unknown indication
     Dosage: 10 MG, QD
     Route: 048
     Dates: start: 2001, end: 20140915
  6. LITHIUM [Concomitant]
     Active Substance: LITHIUM
     Indication: Product used for unknown indication
     Dosage: 400 MG, QD
     Route: 048
     Dates: start: 2011, end: 20140915
  7. SERTINDOLE [Concomitant]
     Active Substance: SERTINDOLE
     Indication: Product used for unknown indication
     Dosage: 12 MG, BID
     Route: 048
     Dates: start: 2013, end: 20140912
  8. SERTINDOLE [Concomitant]
     Active Substance: SERTINDOLE
     Indication: Product used for unknown indication
     Dosage: 24 MG, QD
     Route: 048
     Dates: start: 2013, end: 20140912
  9. LITHIUM CARBONATE [Concomitant]
     Active Substance: LITHIUM CARBONATE
     Indication: Product used for unknown indication
     Dosage: 400 MG, QD
     Route: 048
     Dates: start: 2011, end: 20140915

REACTIONS (2)
  - Agranulocytosis [Recovered/Resolved]
  - Product use in unapproved indication [Unknown]

NARRATIVE: CASE EVENT DATE: 20090101
